FAERS Safety Report 11782793 (Version 1)
Quarter: 2015Q4

REPORT INFORMATION
  Report Type: Report from Study
  Country: US (occurrence: US)
  Receive Date: 20151127
  Receipt Date: 20151127
  Transmission Date: 20160305
  Serious: Yes (Other)
  Sender: FDA-Public Use
  Company Number: US-BIOGENIDEC-2015BI156556

PATIENT
  Sex: Female
  Weight: 47 kg

DRUGS (2)
  1. AVONEX [Suspect]
     Active Substance: INTERFERON BETA-1A
     Indication: MULTIPLE SCLEROSIS
     Route: 030
  2. ASPIRIN EC [Concomitant]
     Active Substance: ASPIRIN
     Route: 048

REACTIONS (3)
  - Migraine [Unknown]
  - Vitamin D deficiency [Unknown]
  - Deep vein thrombosis [Unknown]
